FAERS Safety Report 18649748 (Version 8)
Quarter: 2024Q4

REPORT INFORMATION
  Report Type: Spontaneous
  Country: US (occurrence: US)
  Receive Date: 20201222
  Receipt Date: 20241007
  Transmission Date: 20250114
  Serious: Yes (Other)
  Sender: PFIZER
  Company Number: US-PFIZER INC-2020502511

PATIENT
  Age: 60 Year
  Sex: Female

DRUGS (3)
  1. XELJANZ XR [Suspect]
     Active Substance: TOFACITINIB CITRATE
     Indication: Rheumatoid arthritis
     Dosage: 11 MG, 1X/DAY
     Route: 048
     Dates: start: 2019
  2. XELJANZ XR [Suspect]
     Active Substance: TOFACITINIB CITRATE
     Dosage: 11 MG, 1X/DAY
     Route: 048
     Dates: start: 2019, end: 202403
  3. XELJANZ XR [Suspect]
     Active Substance: TOFACITINIB CITRATE
     Dosage: 11 MG, 1X/DAY [ONCE DAILY]
     Route: 048
     Dates: start: 2024, end: 202409

REACTIONS (15)
  - Respiratory syncytial virus bronchitis [Unknown]
  - Product dose omission issue [Unknown]
  - Headache [Recovered/Resolved]
  - COVID-19 [Recovered/Resolved]
  - Pain in extremity [Recovering/Resolving]
  - Inflammation [Unknown]
  - Malaise [Unknown]
  - Nasal congestion [Recovered/Resolved]
  - Chest discomfort [Recovered/Resolved]
  - Pain [Recovered/Resolved]
  - Herpes zoster [Recovering/Resolving]
  - Weight increased [Unknown]
  - Abdominal pain upper [Recovered/Resolved]
  - Neck pain [Recovered/Resolved]
  - Back pain [Recovered/Resolved]

NARRATIVE: CASE EVENT DATE: 20210101
